FAERS Safety Report 22962663 (Version 2)
Quarter: 2023Q4

REPORT INFORMATION
  Report Type: Spontaneous
  Country: US (occurrence: US)
  Receive Date: 20230920
  Receipt Date: 20231121
  Transmission Date: 20240110
  Serious: Yes (Other)
  Sender: FDA-Public Use
  Company Number: US-PFIZER INC-202300302173

PATIENT
  Age: 52 Year
  Sex: Male
  Weight: 132.42 kg

DRUGS (6)
  1. DEPO-TESTOSTERONE [Suspect]
     Active Substance: TESTOSTERONE CYPIONATE
     Indication: Blood testosterone decreased
     Dosage: 200 MG, CYCLIC (BIWEEKLY)
     Dates: start: 20230402, end: 20230802
  2. DEPO-TESTOSTERONE [Suspect]
     Active Substance: TESTOSTERONE CYPIONATE
     Indication: Fatigue
  3. DEPO-TESTOSTERONE [Suspect]
     Active Substance: TESTOSTERONE CYPIONATE
     Indication: Erectile dysfunction
  4. SYNTHROID [Concomitant]
     Active Substance: LEVOTHYROXINE SODIUM
     Dosage: UNK
     Dates: start: 199805
  5. HUMALOG [Concomitant]
     Active Substance: INSULIN LISPRO
     Dosage: UNK
     Dates: start: 200212
  6. LISINOPRIL [Concomitant]
     Active Substance: LISINOPRIL
     Dosage: UNK
     Dates: start: 200508

REACTIONS (7)
  - Suicidal ideation [Recovering/Resolving]
  - Mental impairment [Recovering/Resolving]
  - Judgement impaired [Recovering/Resolving]
  - Hypersexuality [Recovered/Resolved with Sequelae]
  - Mania [Recovered/Resolved with Sequelae]
  - Obsessive-compulsive disorder [Recovered/Resolved with Sequelae]
  - Wrong dose [Unknown]

NARRATIVE: CASE EVENT DATE: 20230501
